FAERS Safety Report 13368178 (Version 1)
Quarter: 2017Q1

REPORT INFORMATION
  Report Type: Spontaneous
  Country: US (occurrence: US)
  Receive Date: 20170324
  Receipt Date: 20170324
  Transmission Date: 20170429
  Serious: Yes (Other)
  Sender: FDA-Public Use
  Company Number: US-SAOL THERAPEUTICS-2017SAO00543

PATIENT
  Sex: Female

DRUGS (7)
  1. BACLOFEN. [Suspect]
     Active Substance: BACLOFEN
     Indication: PAIN
     Route: 037
  2. BACLOFEN. [Suspect]
     Active Substance: BACLOFEN
     Indication: POST LAMINECTOMY SYNDROME
  3. BUPIVICAINE [Suspect]
     Active Substance: BUPIVACAINE
     Route: 037
  4. MORPHINE [Suspect]
     Active Substance: MORPHINE
     Route: 037
  5. KETAMINE [Suspect]
     Active Substance: KETAMINE
     Route: 037
  6. MARCAINE [Suspect]
     Active Substance: BUPIVACAINE HYDROCHLORIDE
     Route: 037
  7. UNSPECIFIED STEROIDS [Concomitant]
     Active Substance: UNSPECIFIED INGREDIENT

REACTIONS (9)
  - Coronary artery disease [Unknown]
  - Implant site mass [Recovered/Resolved]
  - Hypertension [Unknown]
  - Diabetes mellitus [Unknown]
  - Off label use [Unknown]
  - Weight increased [Unknown]
  - Cerebrospinal fluid leakage [Recovered/Resolved]
  - Back pain [Unknown]
  - Haematuria [Unknown]

NARRATIVE: CASE EVENT DATE: 2011
